FAERS Safety Report 16224826 (Version 1)
Quarter: 2019Q2

REPORT INFORMATION
  Report Type: Spontaneous
  Country: BE (occurrence: BE)
  Receive Date: 20190422
  Receipt Date: 20190422
  Transmission Date: 20190711
  Serious: Yes (Hospitalization)
  Sender: FDA-Public Use
  Company Number: BE-B.I. PHARMACEUTICALS,INC./RIDGEFIELD-2019-BI-018448

PATIENT
  Age: 79 Year

DRUGS (1)
  1. SIFROL [Suspect]
     Active Substance: PRAMIPEXOLE
     Indication: PRODUCT USED FOR UNKNOWN INDICATION
     Dosage: 0.09 TO 1.4 MG/D AND ADMINISTERED 2 DAYS IN A ROW
     Route: 065

REACTIONS (4)
  - Toxicity to various agents [Unknown]
  - Altered state of consciousness [Unknown]
  - Overdose [Unknown]
  - Respiratory failure [Unknown]
